FAERS Safety Report 15470679 (Version 7)
Quarter: 2024Q1

REPORT INFORMATION
  Report Type: Spontaneous
  Country: US (occurrence: US)
  Receive Date: 20181005
  Receipt Date: 20240314
  Transmission Date: 20240410
  Serious: Yes (Other)
  Sender: FDA-Public Use
  Company Number: US-PFIZER INC-2018397920

PATIENT
  Age: 58 Year
  Sex: Female

DRUGS (1)
  1. XELJANZ XR [Suspect]
     Active Substance: TOFACITINIB CITRATE
     Indication: Autoimmune disorder
     Dosage: 11 MG
     Route: 048

REACTIONS (7)
  - Back disorder [Unknown]
  - Off label use [Unknown]
  - Blood test abnormal [Recovered/Resolved]
  - Thinking abnormal [Unknown]
  - Cough [Unknown]
  - Seasonal allergy [Unknown]
  - Dysphonia [Unknown]

NARRATIVE: CASE EVENT DATE: 20240311
